FAERS Safety Report 18030941 (Version 1)
Quarter: 2020Q3

REPORT INFORMATION
  Report Type: Spontaneous
  Country: US (occurrence: US)
  Receive Date: 20200715
  Receipt Date: 20200715
  Transmission Date: 20201103
  Serious: Yes (Hospitalization)
  Sender: FDA-Public Use
  Company Number: None

PATIENT
  Age: 69 Year
  Sex: Female
  Weight: 63 kg

DRUGS (9)
  1. RECLAST [Suspect]
     Active Substance: ZOLEDRONIC ACID
     Indication: OSTEOPOROSIS PROPHYLAXIS
     Route: 042
     Dates: start: 20200608, end: 20200608
  2. AREDS [Concomitant]
     Active Substance: MINERALS\VITAMINS
  3. OMRGA 3 [Concomitant]
  4. EXEMESTRANE [Concomitant]
  5. FLAXSEED [Concomitant]
     Active Substance: FLAX SEED
  6. LISINOPRIL. [Concomitant]
     Active Substance: LISINOPRIL
  7. ELIQUIS [Concomitant]
     Active Substance: APIXABAN
  8. MULTIVITAMIN [Concomitant]
     Active Substance: VITAMINS
  9. VITAMIN D [Concomitant]
     Active Substance: VITAMIN D NOS

REACTIONS (10)
  - Joint swelling [None]
  - Pulmonary embolism [None]
  - Pulmonary artery thrombosis [None]
  - Cough [None]
  - Pain [None]
  - Swelling [None]
  - Illness [None]
  - Oxygen saturation decreased [None]
  - Pyrexia [None]
  - Chest pain [None]

NARRATIVE: CASE EVENT DATE: 20200627
